FAERS Safety Report 7634235-1 (Version None)
Quarter: 2011Q3

REPORT INFORMATION
  Report Type: 
  Country: None (occurrence: None)
  Receive Date: 20110725
  Receipt Date: 20110718
  Transmission Date: 20111222
  Serious: Yes (Hospitalization)
  Sender: FDA-Public Use
  Company Number: FR-EISAI INC-E2090-01605-SPO-FR

PATIENT
  Age: 45 Year
  Sex: Female
  Weight: 55 kg

DRUGS (6)
  1. ZONEGRAN [Suspect]
     Dosage: INCREASED UP TO 300 MG DAILY
     Route: 048
     Dates: start: 20101201, end: 20110101
  2. ZONEGRAN [Suspect]
     Dosage: 50 MG MORNING, 50 MG EVENING
     Dates: start: 20110101
  3. TEGRETOL [Concomitant]
     Dosage: 800 MG (UNKNOWN)
     Route: 048
     Dates: start: 20110120
  4. PREDNISOLONE [Concomitant]
  5. KEPPRA [Concomitant]
     Indication: EPILEPSY
     Route: 048
  6. ZONEGRAN [Suspect]
     Indication: EPILEPSY
     Route: 048
     Dates: start: 20100101, end: 20101201

REACTIONS (5)
  - CONFUSIONAL STATE [None]
  - MEMORY IMPAIRMENT [None]
  - FATIGUE [None]
  - AGGRESSION [None]
  - ABDOMINAL PAIN [None]
